FAERS Safety Report 21605409 (Version 1)
Quarter: 2022Q4

REPORT INFORMATION
  Report Type: Spontaneous
  Country: US (occurrence: US)
  Receive Date: 20221116
  Receipt Date: 20221116
  Transmission Date: 20230112
  Serious: No
  Sender: FDA-Public Use
  Company Number: US-PERRIGO-22US012428

PATIENT
  Age: 47 Year
  Sex: Female
  Weight: 46.712 kg

DRUGS (2)
  1. POLYETHYLENE GLYCOL 3350 [Suspect]
     Active Substance: POLYETHYLENE GLYCOL 3350
     Indication: Constipation
     Dosage: 4.25 G, SINGLE
     Route: 048
     Dates: start: 20220914, end: 20220914
  2. LEVONORGESTREL [Concomitant]
     Active Substance: LEVONORGESTREL
     Indication: Oral contraception
     Dosage: UNK
     Route: 065

REACTIONS (4)
  - Abdominal distension [Recovering/Resolving]
  - Flatulence [Recovering/Resolving]
  - Abdominal pain upper [Recovering/Resolving]
  - Underdose [Recovered/Resolved]

NARRATIVE: CASE EVENT DATE: 20220914
